FAERS Safety Report 10562228 (Version 1)
Quarter: 2014Q4

REPORT INFORMATION
  Report Type: Spontaneous
  Country: US (occurrence: None)
  Receive Date: 20141031
  Receipt Date: 20141031
  Transmission Date: 20150529
  Serious: Yes (Hospitalization, Other)
  Sender: FDA-Public Use
  Company Number: 2014-US-013884

PATIENT
  Age: 53 Year
  Sex: Male

DRUGS (1)
  1. XYREM [Suspect]
     Active Substance: SODIUM OXYBATE
     Indication: INSOMNIA
     Route: 048
     Dates: start: 201005, end: 2010

REACTIONS (4)
  - Off label use [None]
  - Hernia [None]
  - Post procedural complication [None]
  - Abdominal pain lower [None]

NARRATIVE: CASE EVENT DATE: 201402
